FAERS Safety Report 10362328 (Version 1)
Quarter: 2014Q3

REPORT INFORMATION
  Report Type: Spontaneous
  Country: JP (occurrence: None)
  Receive Date: 20140725
  Receipt Date: 20140725
  Transmission Date: 20150326
  Serious: Yes (Other)
  Sender: FDA-Public Use
  Company Number: FK201402468

PATIENT
  Age: 76 Year
  Sex: Male

DRUGS (2)
  1. ESLAX (ROCURONIUM BROMIDE) [Concomitant]
  2. VOLUVEN [Suspect]
     Active Substance: HYDROXYETHYL STARCH 130/0.4
     Indication: PRODUCT USED FOR UNKNOWN INDICATION
     Route: 041
     Dates: start: 20140603, end: 20140603

REACTIONS (2)
  - Anaphylactic shock [None]
  - Tachycardia [None]

NARRATIVE: CASE EVENT DATE: 20140603
